FAERS Safety Report 6934204-0 (Version None)
Quarter: 2010Q3

REPORT INFORMATION
  Report Type: 
  Country: None (occurrence: None)
  Receive Date: 20100820
  Receipt Date: 20100810
  Transmission Date: 20110219
  Serious: Yes (Hospitalization)
  Sender: FDA-Public Use
  Company Number: US-JNJCH-2010018874

PATIENT
  Age: 58 Year
  Sex: Male

DRUGS (3)
  1. ASPIRIN [Suspect]
     Indication: PROPHYLAXIS
     Route: 048
  2. WARFARIN SODIUM [Suspect]
     Indication: PROPHYLAXIS
     Route: 048
  3. ENOXAPARIN SODIUM [Suspect]
     Indication: PROPHYLAXIS
     Dosage: TEXT:80MG (1 MG/KG) UNSPECIFIED
     Route: 048

REACTIONS (3)
  - COLONIC HAEMATOMA [None]
  - INTRA-ABDOMINAL HAEMORRHAGE [None]
  - SHOCK HAEMORRHAGIC [None]
